FAERS Safety Report 24383400 (Version 1)
Quarter: 2024Q4

REPORT INFORMATION
  Report Type: Spontaneous
  Country: CN (occurrence: CN)
  Receive Date: 20241001
  Receipt Date: 20241001
  Transmission Date: 20250114
  Serious: Yes (Other)
  Sender: PFIZER
  Company Number: CN-PFIZER INC-PV202400126254

PATIENT
  Age: 76 Year
  Sex: Female
  Weight: 49 kg

DRUGS (2)
  1. VORICONAZOLE [Suspect]
     Active Substance: VORICONAZOLE
     Indication: Pneumonia
     Dosage: 300 MG, 2X/DAY
     Route: 041
     Dates: start: 20240918, end: 20240919
  2. VORICONAZOLE [Suspect]
     Active Substance: VORICONAZOLE
     Indication: Pneumonia
     Dosage: 200 MG, 2X/DAY
     Route: 048
     Dates: start: 20240919, end: 20240921

REACTIONS (4)
  - Mental disorder [Recovering/Resolving]
  - Poor quality sleep [Recovering/Resolving]
  - Fumbling [Recovering/Resolving]
  - Disorganised speech [Recovering/Resolving]

NARRATIVE: CASE EVENT DATE: 20240920
